FAERS Safety Report 10218976 (Version 2)
Quarter: 2014Q2

REPORT INFORMATION
  Report Type: Spontaneous
  Country: FR (occurrence: FR)
  Receive Date: 20140605
  Receipt Date: 20140613
  Transmission Date: 20141212
  Serious: Yes (Hospitalization)
  Sender: FDA-Public Use
  Company Number: FR-PFIZER INC-2014150991

PATIENT
  Age: 22 Year
  Sex: Male

DRUGS (18)
  1. AZITHROMYCINE [Suspect]
     Dosage: UNK
     Route: 065
     Dates: start: 20131224
  2. TYGACIL [Suspect]
     Dosage: UNK
     Route: 065
     Dates: start: 20140301
  3. EUPANTOL [Suspect]
     Dosage: UNK
     Route: 048
     Dates: start: 20131223
  4. MEROPENEM [Suspect]
     Dosage: UNK
     Route: 065
     Dates: start: 20140228
  5. BACTRIM [Suspect]
     Dosage: UNK
     Route: 065
     Dates: start: 20140409
  6. AMIKACIN [Suspect]
     Dosage: UNK
     Route: 065
     Dates: start: 20140108, end: 20140331
  7. IMUKIN [Suspect]
     Dosage: UNK
     Route: 065
     Dates: start: 20140317
  8. CREON [Concomitant]
     Dosage: UNK
     Dates: start: 20131223
  9. TOCO [Concomitant]
     Dosage: UNK
     Dates: start: 20131224
  10. LACTEOL [Concomitant]
     Dosage: UNK
     Dates: start: 20140125
  11. ZYVOXID [Concomitant]
     Dosage: UNK
     Dates: start: 20140228
  12. DIFFU K [Concomitant]
     Dosage: UNK
     Dates: start: 20140304
  13. SPASFON [Concomitant]
     Dosage: UNK
     Route: 042
     Dates: start: 20140306
  14. ZOPHREN [Concomitant]
     Dosage: UNK
     Dates: start: 20140328
  15. TARGOCID [Concomitant]
     Dosage: UNK
     Dates: start: 20140127
  16. FLAGYL [Concomitant]
     Dosage: UNK
     Dates: start: 20140227, end: 20140306
  17. ACUPAN [Concomitant]
     Dosage: UNK
     Dates: start: 20140227, end: 20140315
  18. LYRICA [Concomitant]
     Dosage: UNK
     Dates: start: 20140425

REACTIONS (1)
  - Arthralgia [Unknown]
